FAERS Safety Report 5197360-3 (Version None)
Quarter: 2006Q4

REPORT INFORMATION
  Report Type: 
  Country: None (occurrence: None)
  Receive Date: 20060929
  Receipt Date: 20060110
  Transmission Date: 20070319
  Serious: Yes (Death)
  Sender: FDA-Public Use
  Company Number: 06P-163-0321774-00

PATIENT
  Age: 72 Year
  Sex: Female

DRUGS (1)
  1. DEPAKOTE ER [Suspect]
     Dosage: 500 MG, 1 IN 1 D

REACTIONS (1)
  - DEATH [None]
